FAERS Safety Report 18017801 (Version 1)
Quarter: 2020Q3

REPORT INFORMATION
  Report Type: Spontaneous
  Country: US (occurrence: US)
  Receive Date: 20200713
  Receipt Date: 20200713
  Transmission Date: 20201103
  Serious: No
  Sender: FDA-Public Use
  Company Number: US-JUBILANT PHARMA LTD-2020US000461

PATIENT
  Sex: Male

DRUGS (4)
  1. REGADENOSON [Concomitant]
     Active Substance: REGADENOSON
     Indication: CARDIAC PHARMACOLOGIC STRESS TEST
     Dosage: UNK
  2. SALONPAS PLASTERS [Suspect]
     Active Substance: CAMPHOR (SYNTHETIC)\MENTHOL\METHYL SALICYLATE
     Indication: BACK PAIN
  3. RUBY?FILL [Suspect]
     Active Substance: RUBIDIUM CHLORIDE RB-82
     Indication: SCAN MYOCARDIAL PERFUSION
     Dosage: 21.39 MCI, SINGLE DOSE [REST]
     Dates: start: 20200530, end: 20200530
  4. RUBY?FILL [Suspect]
     Active Substance: RUBIDIUM CHLORIDE RB-82
     Dosage: 21.29 MCI, SINGLE DOSE [STRESS]
     Dates: start: 20200530, end: 20200530

REACTIONS (1)
  - Rash [Recovering/Resolving]

NARRATIVE: CASE EVENT DATE: 20200601
